FAERS Safety Report 24132689 (Version 1)
Quarter: 2024Q3

REPORT INFORMATION
  Report Type: Spontaneous
  Country: US (occurrence: US)
  Receive Date: 20240724
  Receipt Date: 20240724
  Transmission Date: 20241016
  Serious: No
  Sender: SANOFI AVENTIS
  Company Number: US-SA-SAC20240722000037

PATIENT
  Sex: Female

DRUGS (2)
  1. KEVZARA [Suspect]
     Active Substance: SARILUMAB
     Indication: Rheumatoid arthritis
     Dosage: UNK
  2. KEVZARA [Suspect]
     Active Substance: SARILUMAB
     Dosage: 150 MG QOW
     Route: 058
     Dates: start: 20240715

REACTIONS (4)
  - Pain [Unknown]
  - Arthralgia [Unknown]
  - Hepatic enzyme increased [Recovered/Resolved]
  - Therapeutic response decreased [Unknown]
